FAERS Safety Report 9263354 (Version 1)
Quarter: 2013Q2

REPORT INFORMATION
  Report Type: Spontaneous
  Country: US (occurrence: US)
  Receive Date: 20130430
  Receipt Date: 20130430
  Transmission Date: 20140414
  Serious: No
  Sender: FDA-Public Use
  Company Number: US-ABBOTT-12P-163-0975169-00

PATIENT
  Age: 59 Year
  Sex: Female
  Weight: 51.76 kg

DRUGS (12)
  1. CREON [Suspect]
     Indication: PANCREATIC INSUFFICIENCY
     Dates: start: 201205, end: 201206
  2. CREON [Suspect]
     Indication: SCLERODERMA
     Dates: start: 201206, end: 20120815
  3. CREON [Suspect]
     Dosage: TAKES 1 OR 2 WITH A FATTY MEAL
     Dates: start: 20120815
  4. PEPCID [Concomitant]
     Indication: GASTROOESOPHAGEAL REFLUX DISEASE
  5. FOLIC ACID [Concomitant]
     Indication: ANAEMIA
  6. PROTOPIC [Concomitant]
     Indication: ECZEMA
  7. SYNTHROID [Concomitant]
     Indication: HYPOTHYROIDISM
  8. PROCARDIA XL [Concomitant]
  9. RESTASIS [Concomitant]
     Indication: PRODUCT USED FOR UNKNOWN INDICATION
  10. CORDRAN TAPE [Concomitant]
     Indication: RAYNAUD^S PHENOMENON
  11. KETOCONAZOLE SHAMPOO [Concomitant]
     Indication: ECZEMA
  12. VITAMINS [Concomitant]
     Indication: VITAMIN SUPPLEMENTATION

REACTIONS (3)
  - Oral pain [Not Recovered/Not Resolved]
  - Mouth ulceration [Not Recovered/Not Resolved]
  - Weight decreased [Not Recovered/Not Resolved]
